FAERS Safety Report 4720270-X (Version None)
Quarter: 2005Q3

REPORT INFORMATION
  Report Type: 
  Country: None (occurrence: None)
  Receive Date: 20050721
  Receipt Date: 20050708
  Transmission Date: 20060218
  Serious: Yes (Other)
  Sender: FDA-Public Use
  Company Number: US-GLAXOSMITHKLINE-A0565526A

PATIENT
  Sex: Female

DRUGS (2)
  1. ECOTRIN REGULAR STRENGTH TABLETS [Suspect]
     Dosage: 325MG PER DAY
     Route: 048
  2. PLAVIX [Concomitant]

REACTIONS (1)
  - HAEMORRHAGIC DIATHESIS [None]
